FAERS Safety Report 9401547 (Version 1)
Quarter: 2013Q3

REPORT INFORMATION
  Report Type: Report from Study
  Country: GB (occurrence: GB)
  Receive Date: 20130716
  Receipt Date: 20130716
  Transmission Date: 20140515
  Serious: Yes (Other)
  Sender: FDA-Public Use
  Company Number: GB-009507513-1307GBR003865

PATIENT
  Age: 25 Year
  Sex: Female
  Weight: 71 kg

DRUGS (2)
  1. RALTEGRAVIR POTASSIUM [Suspect]
     Dosage: 1500 MG QD
     Route: 048
     Dates: start: 20130623, end: 20130627
  2. MICROGYNON [Suspect]
     Indication: CONTRACEPTION
     Dosage: 30  MG QD
     Route: 048
     Dates: start: 2009

REACTIONS (1)
  - Deep vein thrombosis [Not Recovered/Not Resolved]
